FAERS Safety Report 8115304-9 (Version None)
Quarter: 2012Q1

REPORT INFORMATION
  Report Type: 
  Country: None (occurrence: None)
  Receive Date: 20120206
  Receipt Date: 20120124
  Transmission Date: 20120608
  Serious: Yes (Hospitalization, Other)
  Sender: FDA-Public Use
  Company Number: CZ-JNJFOC-20120105516

PATIENT
  Sex: Male
  Weight: 97 kg

DRUGS (4)
  1. INFLIXIMAB, RECOMBINANT [Suspect]
     Dosage: RECEIVED APPROXIMATELY 12 INFUSIONS
     Route: 042
     Dates: start: 20111223
  2. IBALGIN [Concomitant]
  3. SULFASALAZINE [Concomitant]
     Dates: start: 20091212, end: 20111225
  4. INFLIXIMAB, RECOMBINANT [Suspect]
     Indication: ANKYLOSING SPONDYLITIS
     Route: 042
     Dates: start: 20100402

REACTIONS (2)
  - HEPATIC STEATOSIS [None]
  - MYCOSIS FUNGOIDES [None]
